FAERS Safety Report 8619440-X (Version None)
Quarter: 2012Q3

REPORT INFORMATION
  Report Type: 
  Country: None (occurrence: None)
  Receive Date: 20120824
  Receipt Date: 20120813
  Transmission Date: 20120928
  Serious: Yes (Hospitalization)
  Sender: FDA-Public Use
  Company Number: IT-BRISTOL-MYERS SQUIBB COMPANY-16871386

PATIENT
  Age: 41 Year
  Sex: Female

DRUGS (2)
  1. GLICLAZIDE [Suspect]
     Route: 048
     Dates: start: 20120621, end: 20120621
  2. GLUCOPHAGE [Suspect]
     Route: 048
     Dates: start: 20120621, end: 20120621

REACTIONS (2)
  - SOPOR [None]
  - SELF INJURIOUS BEHAVIOUR [None]
